FAERS Safety Report 17864141 (Version 3)
Quarter: 2020Q3

REPORT INFORMATION
  Report Type: Report from Study
  Country: CA (occurrence: CA)
  Receive Date: 20200605
  Receipt Date: 20200706
  Transmission Date: 20201103
  Serious: Yes (Hospitalization, Disabling, Other)
  Sender: FDA-Public Use
  Company Number: CA-SA-2019SA019068

PATIENT

DRUGS (16)
  1. ALEMTUZUMAB [Suspect]
     Active Substance: ALEMTUZUMAB
     Indication: RELAPSING-REMITTING MULTIPLE SCLEROSIS
     Dosage: 12 MG, QD
     Route: 041
     Dates: start: 20190114, end: 20190118
  2. ACETAMINOPHEN. [Concomitant]
     Active Substance: ACETAMINOPHEN
     Indication: PREMEDICATION
     Dosage: 1000 MG
     Route: 048
     Dates: start: 20190114, end: 20190118
  3. ADVIL [IBUPROFEN] [Concomitant]
     Active Substance: IBUPROFEN
     Indication: PREMEDICATION
     Dosage: 400 MG, PRN
     Route: 048
     Dates: start: 20190114
  4. FLOVENT [Concomitant]
     Active Substance: FLUTICASONE PROPIONATE
     Dosage: UNK UNK, PRN
     Route: 048
  5. VIT D [Concomitant]
     Active Substance: VITAMIN D NOS
     Dosage: UNK, UNK
     Route: 048
  6. NASONEX [Concomitant]
     Active Substance: MOMETASONE FUROATE
     Dosage: UNK UNK, PRN
     Route: 048
     Dates: start: 20190114
  7. VENTOLINE [SALBUTAMOL] [Concomitant]
     Active Substance: ALBUTEROL SULFATE
     Dosage: UNK UNK, PRN
     Route: 055
  8. FLOVENT [Concomitant]
     Active Substance: FLUTICASONE PROPIONATE
     Dosage: UNK UNK, PRN
     Route: 055
  9. ZANTAC [Concomitant]
     Active Substance: RANITIDINE HYDROCHLORIDE
     Indication: PREMEDICATION
     Dosage: 150 MG
     Route: 048
     Dates: start: 20190114, end: 20190118
  10. VENTOLINE [SALBUTAMOL] [Concomitant]
     Active Substance: ALBUTEROL SULFATE
     Dosage: UNK UNK, PRN
     Route: 048
  11. METHYLPREDNISOLONE. [Suspect]
     Active Substance: METHYLPREDNISOLONE
     Indication: PREMEDICATION
     Dosage: 1 G, UNK
     Route: 042
     Dates: start: 20190114, end: 20190118
  12. REACTINE [CETIRIZINE HYDROCHLORIDE] [Concomitant]
     Active Substance: CETIRIZINE HYDROCHLORIDE
     Indication: PREMEDICATION
     Dosage: 10 MG, UNK
     Route: 048
     Dates: start: 20180114, end: 20180118
  13. ACYCLOVIR [ACICLOVIR] [Concomitant]
     Active Substance: ACYCLOVIR
     Indication: PREMEDICATION
     Dosage: 200 MG, BID
     Route: 048
     Dates: start: 20190114, end: 201902
  14. DEXILANT [Concomitant]
     Active Substance: DEXLANSOPRAZOLE
     Dosage: UNK, UNK
     Route: 048
  15. REACTINE [CETIRIZINE HYDROCHLORIDE] [Concomitant]
     Active Substance: CETIRIZINE HYDROCHLORIDE
     Dosage: UNK UNK, UNK
     Route: 048
  16. ADVIL [IBUPROFEN] [Concomitant]
     Active Substance: IBUPROFEN
     Indication: HEADACHE

REACTIONS (52)
  - Fatigue [Not Recovered/Not Resolved]
  - Asthenia [Not Recovered/Not Resolved]
  - Specific gravity urine decreased [Not Recovered/Not Resolved]
  - Oral pain [Recovered/Resolved]
  - Stress [Recovered/Resolved]
  - Unevaluable event [Recovered/Resolved]
  - Abnormal faeces [Recovered/Resolved]
  - Tongue disorder [Recovered/Resolved]
  - Feeling hot [Recovered/Resolved]
  - Agitation [Recovered/Resolved]
  - Feeling cold [Recovered/Resolved]
  - Bacterial test positive [Recovered/Resolved]
  - Body temperature increased [Recovered/Resolved]
  - Asthenia [Recovering/Resolving]
  - Blood thyroid stimulating hormone increased [Recovered/Resolved]
  - Ankle fracture [Recovering/Resolving]
  - Palatal swelling [Recovered/Resolved]
  - Throat irritation [Recovered/Resolved]
  - Oral discomfort [Recovered/Resolved]
  - Dysgeusia [Recovering/Resolving]
  - Dizziness [Recovered/Resolved]
  - Fatigue [Recovering/Resolving]
  - Hypertension [Recovering/Resolving]
  - Insomnia [Recovered/Resolved]
  - Pain [Recovering/Resolving]
  - Inflammation [Recovering/Resolving]
  - Faeces soft [Recovered/Resolved]
  - Neutrophil percentage increased [Recovered/Resolved]
  - Dry mouth [Recovered/Resolved]
  - Pharyngeal swelling [Recovered/Resolved]
  - Nasopharyngitis [Recovering/Resolving]
  - Fall [Recovering/Resolving]
  - Foreign body in throat [Recovered/Resolved]
  - Acne [Recovered/Resolved]
  - Body temperature decreased [Recovered/Resolved]
  - Fatigue [Recovering/Resolving]
  - Chills [Recovering/Resolving]
  - Impaired work ability [Not Recovered/Not Resolved]
  - Oropharyngeal pain [Recovered/Resolved]
  - Heart rate decreased [Recovering/Resolving]
  - Lymphocyte percentage decreased [Not Recovered/Not Resolved]
  - Hypothyroidism [Not Recovered/Not Resolved]
  - Tongue exfoliation [Recovered/Resolved]
  - Flatulence [Recovered/Resolved]
  - Red cell distribution width increased [Not Recovered/Not Resolved]
  - Skin irritation [Recovered/Resolved]
  - Erythema [Recovered/Resolved]
  - Headache [Recovered/Resolved]
  - Lymphocyte count decreased [Recovered/Resolved]
  - Periarthritis [Recovering/Resolving]
  - Pyrexia [Recovering/Resolving]
  - Feeling hot [Recovering/Resolving]

NARRATIVE: CASE EVENT DATE: 201901
